FAERS Safety Report 6966102-0 (Version None)
Quarter: 2010Q3

REPORT INFORMATION
  Report Type: 
  Country: None (occurrence: None)
  Receive Date: 20100903
  Receipt Date: 20100823
  Transmission Date: 20110219
  Serious: Yes (Hospitalization)
  Sender: FDA-Public Use
  Company Number: PHFR2010GB01076

PATIENT
  Sex: Female

DRUGS (9)
  1. CLOZARIL [Suspect]
     Indication: SCHIZOPHRENIA
     Dosage: UNK
     Route: 048
     Dates: start: 20090605
  2. CLOZARIL [Suspect]
     Dosage: 250 MG
     Route: 048
     Dates: start: 20100429, end: 20100622
  3. AMISULPRIDE [Concomitant]
     Indication: SCHIZOPHRENIA
     Dosage: 200 MG
     Route: 048
     Dates: start: 20100520
  4. OMEPRAZOLE [Concomitant]
     Indication: HYPERCHLORHYDRIA
     Dosage: 40 MG
     Route: 048
     Dates: start: 20090708
  5. METHADONE HCL [Concomitant]
     Indication: DRUG WITHDRAWAL SYNDROME
     Dosage: 40 MG
     Route: 048
     Dates: start: 20090525
  6. SIMVASTATIN [Concomitant]
     Indication: HYPERCHOLESTEROLAEMIA
     Dosage: 40 MG
     Route: 048
     Dates: start: 20100527
  7. SEREVENT [Concomitant]
     Indication: DYSPNOEA
     Dosage: 4 PUFFS
     Dates: start: 20100603
  8. FLUTICASONE PROPIONATE [Concomitant]
     Indication: RHINITIS
     Dosage: UNK
     Dates: start: 20100427
  9. LAMOTRIGINE [Concomitant]
     Indication: CONVULSION
     Dosage: 250 MG
     Route: 048
     Dates: start: 20091216

REACTIONS (3)
  - RESPIRATORY FAILURE [None]
  - SLEEP APNOEA SYNDROME [None]
  - WEIGHT INCREASED [None]
